FAERS Safety Report 7069523-3 (Version None)
Quarter: 2010Q4

REPORT INFORMATION
  Report Type: 
  Country: None (occurrence: None)
  Receive Date: 20101028
  Receipt Date: 20100316
  Transmission Date: 20110411
  Serious: No
  Sender: FDA-Public Use
  Company Number: US-WYE-H14143510

PATIENT
  Sex: Female

DRUGS (1)
  1. AMIODARONE [Suspect]
     Dosage: DOSE UNKNOWN
     Route: 065
     Dates: start: 20000101

REACTIONS (2)
  - HYPERTHYROIDISM [None]
  - HYPOTHYROIDISM [None]
